FAERS Safety Report 11972684 (Version 2)
Quarter: 2016Q1

REPORT INFORMATION
  Report Type: Spontaneous
  Country: US (occurrence: US)
  Receive Date: 20160128
  Receipt Date: 20160331
  Transmission Date: 20160526
  Serious: Yes (Other)
  Sender: FDA-Public Use
  Company Number: PHHY2015US168231

PATIENT
  Age: 74 Year
  Sex: Male

DRUGS (15)
  1. ISTALOL [Suspect]
     Active Substance: TIMOLOL MALEATE
     Indication: PRODUCT USED FOR UNKNOWN INDICATION
     Route: 065
  2. DILTIAZEM [Suspect]
     Active Substance: DILTIAZEM
     Indication: PRODUCT USED FOR UNKNOWN INDICATION
     Route: 065
  3. BUPIVACAINE [Suspect]
     Active Substance: BUPIVACAINE
     Indication: PAIN
     Dosage: 2.145 MG, QD
     Route: 037
  4. PAXIL [Suspect]
     Active Substance: PAROXETINE HYDROCHLORIDE
     Indication: PRODUCT USED FOR UNKNOWN INDICATION
     Route: 065
  5. DICLOFENAC SODIUM AND MISOPROSTOL [Suspect]
     Active Substance: DICLOFENAC SODIUM\MISOPROSTOL
     Indication: PRODUCT USED FOR UNKNOWN INDICATION
     Route: 065
  6. DILAUDID [Suspect]
     Active Substance: HYDROMORPHONE HYDROCHLORIDE
     Dosage: 1.849 MG, QD
     Route: 037
  7. NORCO [Suspect]
     Active Substance: ACETAMINOPHEN\HYDROCODONE BITARTRATE
     Indication: PRODUCT USED FOR UNKNOWN INDICATION
     Route: 065
  8. CARAFATE [Suspect]
     Active Substance: SUCRALFATE
     Indication: PRODUCT USED FOR UNKNOWN INDICATION
     Route: 065
  9. BUPIVACAINE [Suspect]
     Active Substance: BUPIVACAINE
     Dosage: 2.219 MG, QD
     Route: 037
  10. DILAUDID [Suspect]
     Active Substance: HYDROMORPHONE HYDROCHLORIDE
     Indication: PAIN
     Dosage: 1.787 MG, QD
     Route: 037
  11. ATIVAN [Suspect]
     Active Substance: LORAZEPAM
     Indication: PRODUCT USED FOR UNKNOWN INDICATION
     Route: 065
  12. BACLOFEN INTRATHECAL [Suspect]
     Active Substance: BACLOFEN
     Indication: PAIN
     Dosage: 53.62 UG, QD
     Route: 037
  13. BACLOFEN INTRATHECAL [Suspect]
     Active Substance: BACLOFEN
     Dosage: 55.48 UG, QD
     Route: 037
  14. LEVOTHYROXINE. [Suspect]
     Active Substance: LEVOTHYROXINE
     Indication: PRODUCT USED FOR UNKNOWN INDICATION
     Route: 065
  15. LYRICA [Suspect]
     Active Substance: PREGABALIN
     Indication: PRODUCT USED FOR UNKNOWN INDICATION
     Route: 065

REACTIONS (12)
  - Adverse drug reaction [Unknown]
  - Medical device site discharge [Recovering/Resolving]
  - Hallucination, auditory [Recovering/Resolving]
  - Staphylococcal skin infection [Unknown]
  - Implant site infection [Recovering/Resolving]
  - Malaise [Unknown]
  - Hallucination, visual [Recovering/Resolving]
  - Wound decomposition [Recovering/Resolving]
  - Wound dehiscence [Recovering/Resolving]
  - Staphylococcal infection [Unknown]
  - Purulence [Unknown]
  - Hallucination, olfactory [Recovering/Resolving]

NARRATIVE: CASE EVENT DATE: 201508
